FAERS Safety Report 7621541-X (Version None)
Quarter: 2011Q3

REPORT INFORMATION
  Report Type: 
  Country: None (occurrence: None)
  Receive Date: 20110719
  Receipt Date: 20110706
  Transmission Date: 20111222
  Serious: Yes (Hospitalization)
  Sender: FDA-Public Use
  Company Number: PHHY2011EC61834

PATIENT
  Sex: Female

DRUGS (2)
  1. BLOOD TRANSFUSION [Concomitant]
  2. DIOVAN HCT [Suspect]
     Indication: HYPERTENSION
     Dosage: 160 MG VALSARTAN AND 25 MG HYDROCHLOROTHIAZIDE, DAILY
     Route: 048
     Dates: start: 20101215

REACTIONS (2)
  - MALAISE [None]
  - SWELLING [None]
